FAERS Safety Report 8493926-3 (Version None)
Quarter: 2012Q3

REPORT INFORMATION
  Report Type: 
  Country: None (occurrence: None)
  Receive Date: 20120709
  Receipt Date: 20120702
  Transmission Date: 20120928
  Serious: Yes (Other)
  Sender: FDA-Public Use
  Company Number: PHHY2012GB056652

PATIENT
  Age: 69 Year
  Sex: Male
  Weight: 75 kg

DRUGS (11)
  1. ALBUTEROL SULATE [Concomitant]
  2. GABAPENTIN [Suspect]
     Indication: NEURALGIA
     Dosage: 100 MG, TID
     Route: 048
     Dates: start: 20120611, end: 20120618
  3. TAMSULOSIN HCL [Concomitant]
  4. RAMIPRIL [Concomitant]
  5. ATORVASTATIN [Concomitant]
  6. BECLOMETHASONE DIPROPIONATE [Concomitant]
  7. DUTASTERIDE [Concomitant]
  8. ALLOPURINOL [Concomitant]
  9. BENDROFLUMETHIAZIDE [Concomitant]
  10. GAVISCON [Concomitant]
  11. PANTOPRAZOLE [Concomitant]

REACTIONS (1)
  - VIOLENCE-RELATED SYMPTOM [None]
